FAERS Safety Report 4327468-3 (Version None)
Quarter: 2004Q1

REPORT INFORMATION
  Report Type: 
  Country: None (occurrence: None)
  Receive Date: 20040325
  Receipt Date: 20000418
  Transmission Date: 20041129
  Serious: Yes (Death, Other)
  Sender: FDA-Public Use
  Company Number: WAES 00041661

PATIENT
  Age: 5 Day

DRUGS (5)
  1. INDOCIN I.V. [Suspect]
     Indication: PATENT DUCTUS ARTERIOSUS
     Dosage: 163 MICROGRM/1X; IV
     Route: 042
     Dates: start: 19971011, end: 19971011
  2. DOBUTAMINE HCL [Concomitant]
  3. DOPAMINE HCL [Concomitant]
  4. GLUCOSE [Concomitant]
  5. INSULIN [Concomitant]

REACTIONS (6)
  - BLOOD GLUCOSE DECREASED [None]
  - BLOOD POTASSIUM INCREASED [None]
  - BLOOD URINE PRESENT [None]
  - CARDIAC FAILURE CONGESTIVE [None]
  - GLUCOSE URINE PRESENT [None]
  - RENAL FAILURE [None]
